FAERS Safety Report 6433996-7 (Version None)
Quarter: 2009Q4

REPORT INFORMATION
  Report Type: 
  Country: None (occurrence: None)
  Receive Date: 20091110
  Receipt Date: 20091028
  Transmission Date: 20100525
  Serious: Yes (Other)
  Sender: FDA-Public Use
  Company Number: PHHY2009JP47178

PATIENT
  Age: 57 Year
  Sex: Male

DRUGS (1)
  1. METOPROLOL TARTRATE [Suspect]
     Dosage: UNK

REACTIONS (2)
  - ATRIAL FIBRILLATION [None]
  - VENTRICULAR ARRHYTHMIA [None]
